FAERS Safety Report 6858336-0 (Version None)
Quarter: 2010Q3

REPORT INFORMATION
  Report Type: 
  Country: None (occurrence: None)
  Receive Date: 20100719
  Receipt Date: 20080416
  Transmission Date: 20110219
  Serious: No
  Sender: FDA-Public Use
  Company Number: US-PFIZER INC-2008012079

PATIENT
  Sex: Male
  Weight: 83.9 kg

DRUGS (6)
  1. CHANTIX [Suspect]
     Indication: SMOKING CESSATION THERAPY
     Dates: start: 20070717, end: 20080204
  2. PLAVIX [Concomitant]
  3. HYDROCHLOROTHIAZIDE [Concomitant]
  4. LISINOPRIL [Concomitant]
  5. TAMSULOSIN HYDROCHLORIDE [Concomitant]
  6. METFORMIN HCL [Concomitant]

REACTIONS (4)
  - FEELING JITTERY [None]
  - INSOMNIA [None]
  - MALAISE [None]
  - VOMITING [None]
